FAERS Safety Report 9630350 (Version 1)
Quarter: 2013Q4

REPORT INFORMATION
  Report Type: Spontaneous
  Country: US (occurrence: US)
  Receive Date: 20131018
  Receipt Date: 20131018
  Transmission Date: 20140711
  Serious: Yes (Hospitalization, Other)
  Sender: FDA-Public Use
  Company Number: US-AMGEN-USASP2013072117

PATIENT
  Sex: Female

DRUGS (1)
  1. SENSIPAR [Suspect]
     Indication: RENAL CYST
     Dosage: UNK UNK, QD
     Route: 048
     Dates: start: 20131004

REACTIONS (4)
  - Fall [Unknown]
  - Tremor [Unknown]
  - Dyskinesia [Unknown]
  - Incorrect dose administered [Unknown]
